FAERS Safety Report 4873212-0 (Version None)
Quarter: 2006Q1

REPORT INFORMATION
  Report Type: 
  Country: None (occurrence: None)
  Receive Date: 20060105
  Receipt Date: 20051228
  Transmission Date: 20060701
  Serious: Yes (Hospitalization)
  Sender: FDA-Public Use
  Company Number: US-MERCK-0512USA03932

PATIENT
  Age: 56 Year
  Sex: Male

DRUGS (6)
  1. VIOXX [Suspect]
     Indication: KNEE OPERATION
     Route: 048
     Dates: start: 20030101, end: 20040901
  2. METOPROLOL TARTRATE [Concomitant]
     Route: 065
  3. METFORMIN HYDROCHLORIDE [Concomitant]
     Route: 065
  4. LISINOPRIL [Concomitant]
     Route: 065
  5. SIMVASTATIN [Concomitant]
     Route: 065
  6. GLYBURIDE [Concomitant]
     Route: 065

REACTIONS (1)
  - CORONARY ARTERY DISEASE [None]
